FAERS Safety Report 4596806-9 (Version None)
Quarter: 2005Q1

REPORT INFORMATION
  Report Type: 
  Country: None (occurrence: None)
  Receive Date: 20050225
  Receipt Date: 20050215
  Transmission Date: 20050727
  Serious: Yes (Death, Hospitalization)
  Sender: FDA-Public Use
  Company Number: AZAUS200500059

PATIENT
  Age: 82 Year
  Sex: Male
  Weight: 67.1324 kg

DRUGS (1)
  1. VIADAZA (AZACITIDINE)(INJECTION) [Suspect]
     Indication: MYELODYSPLASTIC SYNDROME
     Dosage: 75 MG/M2 (130 MG, DAILY), SUBCUTANEOUS
     Route: 058
     Dates: start: 20050131, end: 20050203

REACTIONS (2)
  - CLOSTRIDIUM DIFFICILE SEPSIS [None]
  - INTESTINAL PERFORATION [None]
